FAERS Safety Report 11153276 (Version 1)
Quarter: 2015Q2

REPORT INFORMATION
  Report Type: Spontaneous
  Country: US (occurrence: US)
  Receive Date: 20150601
  Receipt Date: 20150601
  Transmission Date: 20150821
  Serious: Yes (Hospitalization, Other)
  Sender: FDA-Public Use
  Company Number: PHHY2015US063807

PATIENT
  Age: 62 Year
  Sex: Female

DRUGS (1)
  1. METHADONE [Suspect]
     Active Substance: METHADONE HYDROCHLORIDE
     Indication: BACK PAIN
     Route: 065

REACTIONS (4)
  - Muscular weakness [Recovered/Resolved]
  - Constipation [Unknown]
  - Bradycardia [Recovered/Resolved]
  - Hyperkalaemia [Recovered/Resolved]
